FAERS Safety Report 15656340 (Version 1)
Quarter: 2018Q4

REPORT INFORMATION
  Report Type: Spontaneous
  Country: BR (occurrence: BR)
  Receive Date: 20181126
  Receipt Date: 20181126
  Transmission Date: 20190205
  Serious: Yes (Other)
  Sender: FDA-Public Use
  Company Number: BR-PFIZER INC-2018480190

PATIENT
  Age: 73 Year
  Sex: Male

DRUGS (2)
  1. LORAX [Suspect]
     Active Substance: LORAZEPAM
     Dosage: UNK, DAILY (NO MORE THAN 3 TABLETS DAILY)
  2. LORAX [Suspect]
     Active Substance: LORAZEPAM
     Indication: CARDIOVASCULAR DISORDER
     Dosage: UNK
     Dates: start: 1981

REACTIONS (4)
  - Constipation [Unknown]
  - Product use in unapproved indication [Unknown]
  - Memory impairment [Unknown]
  - Colon cancer [Unknown]
